FAERS Safety Report 15024511 (Version 1)
Quarter: 2018Q2

REPORT INFORMATION
  Report Type: Spontaneous
  Country: US (occurrence: US)
  Receive Date: 20180618
  Receipt Date: 20180618
  Transmission Date: 20180711
  Serious: No
  Sender: FDA-Public Use
  Company Number: US-TAKEDA-2018MPI007229

PATIENT
  Sex: Female

DRUGS (1)
  1. VELCADE [Suspect]
     Active Substance: BORTEZOMIB
     Indication: NON-RENAL CELL CARCINOMA OF KIDNEY
     Dosage: UNK UNK, 2/WEEK
     Route: 065

REACTIONS (4)
  - White blood cell count decreased [Unknown]
  - Off label use [Unknown]
  - Liver disorder [Unknown]
  - Fatigue [Unknown]
